FAERS Safety Report 16817408 (Version 3)
Quarter: 2019Q3

REPORT INFORMATION
  Report Type: Spontaneous
  Country: US (occurrence: US)
  Receive Date: 20190917
  Receipt Date: 20190930
  Transmission Date: 20191005
  Serious: No
  Sender: FDA-Public Use
  Company Number: US-PFIZER INC-2019395768

PATIENT
  Age: 52 Year
  Sex: Female
  Weight: 75.3 kg

DRUGS (3)
  1. ANASTROZOLE. [Concomitant]
     Active Substance: ANASTROZOLE
     Indication: BREAST CANCER
     Dosage: 1 MG, UNK
  2. IBRANCE [Suspect]
     Active Substance: PALBOCICLIB
     Indication: BREAST CANCER
     Dosage: 125 MG, UNK
  3. IBRANCE [Suspect]
     Active Substance: PALBOCICLIB
     Dosage: 125 MG, UNK
     Dates: start: 201908

REACTIONS (7)
  - Diarrhoea [Unknown]
  - Feeling abnormal [Unknown]
  - Headache [Unknown]
  - Depressed mood [Unknown]
  - Stress [Unknown]
  - Memory impairment [Unknown]
  - Disturbance in attention [Unknown]
